FAERS Safety Report 8457968-6 (Version None)
Quarter: 2012Q2

REPORT INFORMATION
  Report Type: 
  Country: None (occurrence: None)
  Receive Date: 20120622
  Receipt Date: 20120618
  Transmission Date: 20120825
  Serious: Yes (Life-Threatening, Other)
  Sender: FDA-Public Use
  Company Number: US-JNJFOC-20120521515

PATIENT
  Sex: Male

DRUGS (1)
  1. DOXORUBICIN HYDROCHLORIDE [Suspect]
     Indication: DESMOID TUMOUR
     Dosage: PATIENT HAD RECEIVED 26 CYCLES
     Route: 042
     Dates: start: 20040601, end: 20060830

REACTIONS (1)
  - SQUAMOUS CELL CARCINOMA [None]
